FAERS Safety Report 8874069 (Version 3)
Quarter: 2013Q3

REPORT INFORMATION
  Report Type: Spontaneous
  Country: BR (occurrence: BR)
  Receive Date: 20121031
  Receipt Date: 20130723
  Transmission Date: 20140515
  Serious: Yes (Other)
  Sender: FDA-Public Use
  Company Number: BR-AMGEN-BRACT2012051257

PATIENT
  Age: 63 Year
  Sex: Female
  Weight: 74 kg

DRUGS (8)
  1. ENBREL [Suspect]
     Indication: RHEUMATOID ARTHRITIS
     Dosage: 50 MG, WEEKLY
     Route: 065
     Dates: start: 20101229, end: 201110
  2. ENBREL [Suspect]
     Dosage: 50 MG, 1X/WEEK
     Route: 058
     Dates: start: 201110
  3. ENBREL [Suspect]
     Dosage: UNK
     Route: 065
  4. TAPAZOL                            /00022901/ [Concomitant]
     Indication: HYPERTHYROIDISM
     Dosage: 5 MG, ONCE WEEKLY
  5. PAROXETINE HYDROCHLORIDE [Concomitant]
     Indication: DEPRESSION
     Dosage: UNK
  6. PURAN T4 [Concomitant]
     Indication: THYROID DISORDER
     Dosage: UNK
  7. CALCIUM [Concomitant]
     Dosage: UNK
  8. AMPHETAMINE [Concomitant]
     Dosage: UNK

REACTIONS (11)
  - Erythema [Unknown]
  - Pruritus [Unknown]
  - Oropharyngeal pain [Not Recovered/Not Resolved]
  - Allergic cough [Not Recovered/Not Resolved]
  - Weight increased [Unknown]
  - Influenza [Not Recovered/Not Resolved]
  - Rhinitis [Not Recovered/Not Resolved]
  - Treatment noncompliance [Unknown]
  - Deafness [Not Recovered/Not Resolved]
  - Tooth disorder [Unknown]
  - Thyroid disorder [Unknown]
